FAERS Safety Report 4958417-2 (Version None)
Quarter: 2006Q1

REPORT INFORMATION
  Report Type: 
  Country: None (occurrence: None)
  Receive Date: 20060330
  Receipt Date: 20060322
  Transmission Date: 20060701
  Serious: Yes (Other)
  Sender: FDA-Public Use
  Company Number: AT-AVENTIS-200612853GDDC

PATIENT
  Age: 69 Year
  Sex: Male

DRUGS (2)
  1. TRIAMCINOLONE ACETONIDE [Suspect]
     Indication: MACULAR OEDEMA
     Route: 051
  2. TRIAMCINOLONE ACETONIDE [Suspect]
     Indication: RETINAL VEIN OCCLUSION
     Route: 051

REACTIONS (2)
  - ENDOPHTHALMITIS [None]
  - NECROTISING RETINITIS [None]
